FAERS Safety Report 11132718 (Version 1)
Quarter: 2015Q2

REPORT INFORMATION
  Report Type: Report from Study
  Country: FR (occurrence: FR)
  Receive Date: 20150522
  Receipt Date: 20150522
  Transmission Date: 20150821
  Serious: Yes (Hospitalization, Other)
  Sender: FDA-Public Use
  Company Number: FR-GLAXOSMITHKLINE-FR2015GSK070494

PATIENT
  Sex: Male

DRUGS (6)
  1. ASPEGIC [Concomitant]
     Active Substance: ASPIRIN DL-LYSINE
  2. AMLOR [Concomitant]
     Active Substance: AMLODIPINE BESYLATE
  3. COVERSYL [Concomitant]
     Active Substance: PERINDOPRIL
  4. OMEGA-3-ACID ETHYL ESTERS. [Suspect]
     Active Substance: OMEGA-3-ACID ETHYL ESTERS
     Indication: ISCHAEMIC HEART DISEASE PROPHYLAXIS
     Dosage: UNK
     Dates: start: 20061208, end: 20121224
  5. TAHOR [Suspect]
     Active Substance: ATORVASTATIN CALCIUM
  6. AVLOCARDYL [Concomitant]
     Active Substance: PROPRANOLOL HYDROCHLORIDE

REACTIONS (1)
  - Hernial eventration [Unknown]

NARRATIVE: CASE EVENT DATE: 201209
